FAERS Safety Report 5252913-9 (Version None)
Quarter: 2007Q1

REPORT INFORMATION
  Report Type: 
  Country: None (occurrence: None)
  Receive Date: 20070227
  Receipt Date: 20070209
  Transmission Date: 20070707
  Serious: Yes (Other)
  Sender: FDA-Public Use
  Company Number: 236853

PATIENT
  Age: 61 Year
  Sex: Male

DRUGS (1)
  1. AVASTIN [Suspect]
     Indication: DRUG USE FOR UNKNOWN INDICATION
     Dosage: 400 MG, Q14D, INTRAVENOUS
     Route: 042
     Dates: end: 20070215

REACTIONS (1)
  - HEPATOTOXICITY [None]
